FAERS Safety Report 22128218 (Version 1)
Quarter: 2023Q1

REPORT INFORMATION
  Report Type: Spontaneous
  Country: US (occurrence: US)
  Receive Date: 20230323
  Receipt Date: 20230323
  Transmission Date: 20230418
  Serious: No
  Sender: FDA-Public Use
  Company Number: US-ALLERGAN-2236308US

PATIENT
  Age: 32 Year
  Sex: Female
  Weight: 106.59 kg

DRUGS (4)
  1. VRAYLAR [Suspect]
     Active Substance: CARIPRAZINE
     Indication: Post-traumatic stress disorder
     Dosage: 1.5 MG, QD
     Route: 048
     Dates: start: 20220826, end: 20221010
  2. VITAMIN D [Concomitant]
     Active Substance: VITAMIN D NOS
     Indication: Affective disorder
     Dosage: UNK
  3. VITAMIN D [Concomitant]
     Active Substance: VITAMIN D NOS
     Indication: Depression
  4. VALACYCLOVIR HYDROCHLORIDE [Concomitant]
     Active Substance: VALACYCLOVIR HYDROCHLORIDE
     Indication: Herpes simplex
     Dosage: UNK

REACTIONS (11)
  - Affective disorder [Not Recovered/Not Resolved]
  - Inappropriate schedule of product administration [Unknown]
  - Therapy interrupted [Unknown]
  - Off label use [Unknown]
  - Intrusive thoughts [Unknown]
  - Anger [Unknown]
  - Crying [Unknown]
  - Frustration tolerance decreased [Unknown]
  - Insomnia [Unknown]
  - Depression [Unknown]
  - Anxiety [Unknown]

NARRATIVE: CASE EVENT DATE: 20220826
